FAERS Safety Report 5952036-7 (Version None)
Quarter: 2008Q4

REPORT INFORMATION
  Report Type: 
  Country: None (occurrence: None)
  Receive Date: 20081113
  Receipt Date: 20080117
  Transmission Date: 20090506
  Serious: No
  Sender: FDA-Public Use
  Company Number: A0701208A

PATIENT
  Age: 61 Year
  Sex: Female

DRUGS (7)
  1. COREG [Suspect]
     Dosage: 25MG TWICE PER DAY
     Route: 048
  2. PREVACID [Concomitant]
  3. LISINOPRIL [Concomitant]
  4. PLAVIX [Concomitant]
  5. XANAX [Concomitant]
  6. ASPIRIN [Concomitant]
  7. ZOCOR [Concomitant]

REACTIONS (4)
  - CRYING [None]
  - DEPRESSION [None]
  - DIARRHOEA [None]
  - INSOMNIA [None]
